FAERS Safety Report 17859549 (Version 2)
Quarter: 2020Q3

REPORT INFORMATION
  Report Type: Report from Study
  Country: US (occurrence: US)
  Receive Date: 20200604
  Receipt Date: 20200710
  Transmission Date: 20201103
  Serious: Yes (Other)
  Sender: FDA-Public Use
  Company Number: NVSC2020US152479

PATIENT
  Sex: Female

DRUGS (1)
  1. COSENTYX [Suspect]
     Active Substance: SECUKINUMAB
     Indication: SPONDYLOARTHROPATHY
     Dosage: 300 MG, QMO
     Route: 058

REACTIONS (8)
  - Arthralgia [Unknown]
  - Neck pain [Unknown]
  - Scoliosis [Unknown]
  - Breast cancer [Unknown]
  - Blood pressure increased [Unknown]
  - Intervertebral disc degeneration [Unknown]
  - Discomfort [Unknown]
  - Back pain [Unknown]

NARRATIVE: CASE EVENT DATE: 2018
